FAERS Safety Report 7759127-9 (Version None)
Quarter: 2011Q3

REPORT INFORMATION
  Report Type: 
  Country: None (occurrence: None)
  Receive Date: 20110919
  Receipt Date: 20110914
  Transmission Date: 20111222
  Serious: Yes (Death)
  Sender: FDA-Public Use
  Company Number: PHHY2011JP82278

PATIENT
  Age: 81 Year
  Sex: Female

DRUGS (6)
  1. PRIMPERAN TAB [Concomitant]
     Dosage: UNK UKN, UNK
     Route: 048
  2. EXELON [Suspect]
     Indication: DEMENTIA ALZHEIMER'S TYPE
     Dosage: 4.5 MG DAILY
     Route: 062
     Dates: start: 20110825, end: 20110831
  3. POLYCARBOPHIL CALCIUM [Concomitant]
     Dosage: UNK UKN, UNK
     Route: 048
  4. EXELON [Suspect]
     Dosage: UNK UKN, UNK
     Route: 062
     Dates: start: 20110901
  5. YOKUKAN-SAN [Concomitant]
     Dosage: UNK UKN, UNK
     Route: 048
  6. ENSURE [Concomitant]
     Dosage: UNK UKN, UNK
     Route: 048

REACTIONS (2)
  - DEATH [None]
  - BLOOD PRESSURE DECREASED [None]
